FAERS Safety Report 6303394-5 (Version None)
Quarter: 2009Q3

REPORT INFORMATION
  Report Type: 
  Country: None (occurrence: None)
  Receive Date: 20090810
  Receipt Date: 20090805
  Transmission Date: 20100115
  Serious: Yes (Other)
  Sender: FDA-Public Use
  Company Number: US-JNJCH-2009021275

PATIENT
  Age: 80 Year
  Sex: Female
  Weight: 59 kg

DRUGS (2)
  1. BENGAY ULTRA STRENGTH PATCH [Suspect]
     Indication: BACK PAIN
     Dosage: TEXT:1 PATCH 1 X
     Route: 061
  2. MOBIC [Concomitant]
     Indication: DRUG USE FOR UNKNOWN INDICATION
     Dosage: TEXT:UNKNOWN
     Route: 065

REACTIONS (3)
  - APPLICATION SITE BURN [None]
  - APPLICATION SITE INFECTION [None]
  - APPLICATION SITE PAIN [None]
